FAERS Safety Report 4908808-0 (Version None)
Quarter: 2006Q1

REPORT INFORMATION
  Report Type: 
  Country: None (occurrence: None)
  Receive Date: 20060210
  Receipt Date: 20051129
  Transmission Date: 20060701
  Serious: No
  Sender: FDA-Public Use
  Company Number: US-GLAXOSMITHKLINE-A0583847A

PATIENT
  Age: 85 Year
  Sex: Female

DRUGS (4)
  1. PAXIL CR [Suspect]
     Indication: DEPRESSION
     Dosage: 12.5MG ALTERNATE DAYS
     Route: 048
     Dates: start: 20050101, end: 20050101
  2. FOSAMAX [Concomitant]
     Indication: OSTEOPOROSIS
     Dosage: 20MG WEEKLY
     Route: 048
     Dates: start: 19990101
  3. ZOCOR [Concomitant]
     Dosage: 20MG PER DAY
     Route: 048
     Dates: start: 20050101
  4. ZINC [Concomitant]

REACTIONS (1)
  - NIGHTMARE [None]
